FAERS Safety Report 11236853 (Version 3)
Quarter: 2016Q2

REPORT INFORMATION
  Report Type: Report from Study
  Country: MX (occurrence: MX)
  Receive Date: 20150703
  Receipt Date: 20160421
  Transmission Date: 20160815
  Serious: Yes (Disabling)
  Sender: FDA-Public Use
  Company Number: MX-ROCHE-1600715

PATIENT
  Age: 13 Year
  Sex: Female
  Weight: 34 kg

DRUGS (3)
  1. CALCORT [Concomitant]
     Active Substance: DEFLAZACORT
     Indication: JUVENILE IDIOPATHIC ARTHRITIS
     Route: 048
  2. ROACTEMRA [Suspect]
     Active Substance: TOCILIZUMAB
     Indication: JUVENILE IDIOPATHIC ARTHRITIS
     Route: 065
     Dates: start: 20111101, end: 201501
  3. ROACTEMRA [Suspect]
     Active Substance: TOCILIZUMAB
     Indication: JUVENILE IDIOPATHIC ARTHRITIS
     Dosage: 1 MONTH AND A HALF
     Route: 042
     Dates: start: 201501

REACTIONS (8)
  - Inflammation [Recovering/Resolving]
  - Arthralgia [Recovering/Resolving]
  - Drug dose omission [Unknown]
  - Hypoaesthesia [Recovering/Resolving]
  - Drug ineffective [Unknown]
  - Pyrexia [Recovered/Resolved]
  - Pain [Recovering/Resolving]
  - Juvenile idiopathic arthritis [Unknown]

NARRATIVE: CASE EVENT DATE: 201503
